FAERS Safety Report 4756305-8 (Version None)
Quarter: 2005Q3

REPORT INFORMATION
  Report Type: 
  Country: None (occurrence: None)
  Receive Date: 20050830
  Receipt Date: 20050525
  Transmission Date: 20060218
  Serious: No
  Sender: FDA-Public Use
  Company Number: US-GLAXOSMITHKLINE-A0560105A

PATIENT
  Sex: Male

DRUGS (3)
  1. WELLBUTRIN XL [Suspect]
     Indication: DEPRESSION
     Dosage: 150MG PER DAY
     Route: 048
     Dates: start: 20050401
  2. TETRACYCLINE [Concomitant]
     Dosage: 500MG UNKNOWN
     Route: 065
  3. NEXIUM [Concomitant]
     Dosage: 40MG UNKNOWN
     Route: 065

REACTIONS (1)
  - DRUG INEFFECTIVE [None]
